FAERS Safety Report 5775440-9 (Version None)
Quarter: 2008Q2

REPORT INFORMATION
  Report Type: 
  Country: None (occurrence: None)
  Receive Date: 20080617
  Receipt Date: 20080606
  Transmission Date: 20081010
  Serious: Yes (Hospitalization)
  Sender: FDA-Public Use
  Company Number: JP-ABBOTT-07P-087-0420683-00

PATIENT
  Age: 65 Year
  Sex: Male

DRUGS (6)
  1. LEUPLIN SR FOR INJECTION KIT 11.25 MG [Suspect]
     Indication: PROSTATE CANCER STAGE III
     Route: 058
     Dates: start: 20070205
  2. LEUPLIN SR FOR INJECTION KIT 11.25 MG [Suspect]
     Dates: start: 20061113, end: 20070115
  3. BICALUTAMIDE [Concomitant]
     Indication: PROSTATE CANCER STAGE III
     Route: 048
  4. ARICEPT D [Concomitant]
     Indication: DEMENTIA
     Route: 048
  5. IBUDILAST [Concomitant]
     Indication: DEMENTIA
     Route: 048
  6. TIOTROPIUM BROMIDE [Concomitant]
     Indication: EMPHYSEMA
     Route: 055

REACTIONS (3)
  - HYPERCHOLESTEROLAEMIA [None]
  - HYPERTRIGLYCERIDAEMIA [None]
  - PNEUMONIA BACTERIAL [None]
